FAERS Safety Report 10476432 (Version 2)
Quarter: 2014Q3

REPORT INFORMATION
  Report Type: Spontaneous
  Country: US (occurrence: US)
  Receive Date: 20140925
  Receipt Date: 20140930
  Transmission Date: 20150326
  Serious: Yes (Other)
  Sender: FDA-Public Use
  Company Number: US-TEVA-511587USA

PATIENT
  Age: 24 Year
  Sex: Female

DRUGS (1)
  1. PARAGARD T380A [Suspect]
     Active Substance: COPPER
     Indication: CONTRACEPTION
     Route: 015
     Dates: start: 20140616, end: 20140919

REACTIONS (2)
  - Device dislocation [Recovered/Resolved]
  - Pelvic discomfort [Unknown]

NARRATIVE: CASE EVENT DATE: 20140919
